FAERS Safety Report 15271460 (Version 1)
Quarter: 2018Q3

REPORT INFORMATION
  Report Type: Spontaneous
  Country: US (occurrence: US)
  Receive Date: 20180813
  Receipt Date: 20180813
  Transmission Date: 20181010
  Serious: No
  Sender: FDA-Public Use
  Company Number: US-ASTRAZENECA-2018SE98569

PATIENT
  Sex: Female

DRUGS (1)
  1. ZOMIG [Suspect]
     Active Substance: ZOLMITRIPTAN
     Dosage: TAKE ONE TABLET BY MOUTH, MAY REPEAT ONE TABLET AFTER TWO HOURS, MAXIMUM OF 10MG IN 24 HRS
     Route: 048
     Dates: start: 201110

REACTIONS (2)
  - Headache [Unknown]
  - Drug dose omission [Unknown]
